FAERS Safety Report 11180524 (Version 7)
Quarter: 2016Q2

REPORT INFORMATION
  Report Type: Spontaneous
  Country: US (occurrence: US)
  Receive Date: 20150611
  Receipt Date: 20160513
  Transmission Date: 20160815
  Serious: Yes (Other)
  Sender: FDA-Public Use
  Company Number: US-PFIZER INC-2015191612

PATIENT
  Age: 83 Year
  Sex: Female
  Weight: 51 kg

DRUGS (14)
  1. SUTENT [Suspect]
     Active Substance: SUNITINIB MALATE
     Dosage: 50 MG, DAILY
     Dates: start: 20080621
  2. SUTENT [Suspect]
     Active Substance: SUNITINIB MALATE
     Dosage: 25 MG, CYCLIC (TAKE 1 CAPSULE DAILY  FOR 4 WEEK THEN OFF 2 WEEKS)
     Route: 048
     Dates: start: 20150310
  3. FISH OIL [Concomitant]
     Active Substance: FISH OIL
     Dosage: UNK
  4. SUTENT [Suspect]
     Active Substance: SUNITINIB MALATE
     Indication: RENAL CANCER STAGE IV
     Dosage: 25 MG, ONCE DAILY, 28 DAYS ON AND 2 WEEKS OFF
     Route: 048
     Dates: start: 20080508
  5. SUTENT [Suspect]
     Active Substance: SUNITINIB MALATE
     Dosage: 37.5 MG, UNK
  6. AMLODIPINE BESYLATE. [Concomitant]
     Active Substance: AMLODIPINE BESYLATE
     Dosage: 10 MG, UNK
     Route: 048
     Dates: start: 20150316
  7. PANTOPRAZOLE SODIUM. [Concomitant]
     Active Substance: PANTOPRAZOLE SODIUM
     Dosage: 20 MG, UNK
     Route: 048
     Dates: start: 20150223
  8. ATENOLOL. [Concomitant]
     Active Substance: ATENOLOL
     Indication: HYPERTENSION
     Dosage: 50 MG, UNK
     Route: 048
     Dates: start: 20150408
  9. LEVOTHYROXINE SODIUM. [Concomitant]
     Active Substance: LEVOTHYROXINE SODIUM
     Dosage: 88 UG, UNK
     Route: 048
     Dates: start: 20150601
  10. SUTENT [Suspect]
     Active Substance: SUNITINIB MALATE
     Dosage: 25 MG, UNK
  11. SUTENT [Suspect]
     Active Substance: SUNITINIB MALATE
     Dosage: 25 MG, ONCE DAILY, 28 DAYS ON AND 2 WEEKS OFF
     Route: 048
  12. LISINOPRIL. [Concomitant]
     Active Substance: LISINOPRIL
     Dosage: 20 MG, UNK
     Route: 048
     Dates: start: 20150301
  13. FENOFIBRATE. [Concomitant]
     Active Substance: FENOFIBRATE
     Dosage: 54 MG, UNK
     Route: 048
     Dates: start: 20150323
  14. CALCIUM [Concomitant]
     Active Substance: CALCIUM
     Dosage: UNK

REACTIONS (22)
  - Diarrhoea [Not Recovered/Not Resolved]
  - Fatigue [Not Recovered/Not Resolved]
  - Dyspepsia [Recovered/Resolved]
  - Blood cholesterol abnormal [Recovered/Resolved]
  - Bone pain [Unknown]
  - Vomiting [Unknown]
  - Thyroid disorder [Unknown]
  - Anaemia [Unknown]
  - Leukopenia [Unknown]
  - Vertigo [Recovering/Resolving]
  - Blister [Recovered/Resolved]
  - Peripheral swelling [Not Recovered/Not Resolved]
  - Nausea [Unknown]
  - Amnesia [Unknown]
  - Gastrooesophageal reflux disease [Recovered/Resolved]
  - Asthenia [Not Recovered/Not Resolved]
  - Oedema peripheral [Unknown]
  - Hypertension [Unknown]
  - Confusional state [Unknown]
  - Dysgeusia [Recovering/Resolving]
  - Dyspnoea exertional [Unknown]
  - Fall [Unknown]

NARRATIVE: CASE EVENT DATE: 20151102
